FAERS Safety Report 7180123-7 (Version None)
Quarter: 2010Q4

REPORT INFORMATION
  Report Type: 
  Country: None (occurrence: None)
  Receive Date: 20101221
  Receipt Date: 20101216
  Transmission Date: 20110411
  Serious: Yes (Other)
  Sender: FDA-Public Use
  Company Number: US-AMGEN-USASP2010009995

PATIENT

DRUGS (2)
  1. NPLATE [Suspect]
     Indication: IDIOPATHIC THROMBOCYTOPENIC PURPURA
     Dosage: 160 A?G, UNK
     Dates: start: 20101013, end: 20101103
  2. NPLATE [Suspect]
     Dosage: 160 A?G, UNK
     Dates: start: 20101103, end: 20101103

REACTIONS (3)
  - DRUG INEFFECTIVE [None]
  - LYMPHADENOPATHY [None]
  - PANCYTOPENIA [None]
